FAERS Safety Report 25476276 (Version 1)
Quarter: 2025Q2

REPORT INFORMATION
  Report Type: Spontaneous
  Country: IN (occurrence: IN)
  Receive Date: 20250625
  Receipt Date: 20250625
  Transmission Date: 20250717
  Serious: Yes (Death, Hospitalization, Other)
  Sender: RISING PHARMACEUTICALS
  Company Number: IN-RISINGPHARMA-IN-2025RISLIT00288

PATIENT
  Age: 30 Year
  Sex: Male

DRUGS (2)
  1. ITRACONAZOLE [Suspect]
     Active Substance: ITRACONAZOLE
     Indication: Body tinea
     Route: 065
  2. TERBINAFINE [Suspect]
     Active Substance: TERBINAFINE
     Indication: Body tinea
     Route: 065

REACTIONS (22)
  - Cutaneous vasculitis [Fatal]
  - Abdominal pain upper [Fatal]
  - Rash [Fatal]
  - Pyrexia [Fatal]
  - Tachycardia [Fatal]
  - Multiple organ dysfunction syndrome [Fatal]
  - Cardiac arrest [Fatal]
  - Myocarditis [Fatal]
  - Renal impairment [Fatal]
  - Anuria [Fatal]
  - Periorbital oedema [Fatal]
  - Tachypnoea [Fatal]
  - Respiratory failure [Fatal]
  - Liver injury [Fatal]
  - Jaundice [Fatal]
  - Hyperbilirubinaemia [Fatal]
  - Haemophagocytic lymphohistiocytosis [Fatal]
  - Pulmonary alveolar haemorrhage [Fatal]
  - Hepatomegaly [Fatal]
  - Hepatic steatosis [Fatal]
  - Nephropathy [Fatal]
  - Product use in unapproved indication [Unknown]
